FAERS Safety Report 9682777 (Version 1)
Quarter: 2013Q4

REPORT INFORMATION
  Report Type: Spontaneous
  Country: ES (occurrence: ES)
  Receive Date: 20131112
  Receipt Date: 20131112
  Transmission Date: 20140711
  Serious: Yes (Death, Hospitalization, Other)
  Sender: FDA-Public Use
  Company Number: PHHY2013ES125302

PATIENT
  Age: 34 Year
  Sex: Female

DRUGS (3)
  1. EVEROLIMUS [Suspect]
     Indication: PANCREATIC NEUROENDOCRINE TUMOUR
     Dosage: 10 MG, PER DAY
  2. EVEROLIMUS [Suspect]
     Dosage: 15 MG, PER DAY
  3. SANDOSTATIN LAR [Suspect]
     Dosage: 30 MG, EVERY 4 WEEKS

REACTIONS (17)
  - Death [Fatal]
  - Hepatic failure [Unknown]
  - Jaundice [Unknown]
  - Pyrexia [Unknown]
  - Hepatomegaly [Unknown]
  - Concomitant disease progression [Unknown]
  - Gastric disorder [Unknown]
  - Asthenia [Unknown]
  - Decreased appetite [Unknown]
  - Metastases to liver [Unknown]
  - General physical health deterioration [Unknown]
  - Hyperglycaemia [Unknown]
  - Anaemia [Unknown]
  - Stomatitis [Unknown]
  - Vomiting [Unknown]
  - Diarrhoea [Unknown]
  - Palmar-plantar erythrodysaesthesia syndrome [Unknown]
